FAERS Safety Report 13853958 (Version 1)
Quarter: 2017Q3

REPORT INFORMATION
  Report Type: Spontaneous
  Country: DE (occurrence: DE)
  Receive Date: 20170809
  Receipt Date: 20170809
  Transmission Date: 20171127
  Serious: Yes (Life-Threatening, Hospitalization, Disabling, Other)
  Sender: FDA-Public Use
  Company Number: DE-BRISTOL-MYERS SQUIBB COMPANY-BMS-2017-018560

PATIENT
  Age: 60 Year
  Sex: Female
  Weight: 85 kg

DRUGS (9)
  1. OPDIVO [Suspect]
     Active Substance: NIVOLUMAB
     Indication: PRODUCT USED FOR UNKNOWN INDICATION
     Dosage: 3 MG/KG, Q2WK
     Route: 042
     Dates: start: 20160812
  2. PANTOPRAZOLE [Concomitant]
     Active Substance: PANTOPRAZOLE
     Indication: GASTROOESOPHAGEAL REFLUX DISEASE
     Dosage: 40 MG, UNK
     Route: 048
  3. OPDIVO [Suspect]
     Active Substance: NIVOLUMAB
     Indication: PRODUCT USED FOR UNKNOWN INDICATION
     Dosage: 3 MG/KG, Q2WK
     Route: 042
     Dates: start: 20160729
  4. OPDIVO [Suspect]
     Active Substance: NIVOLUMAB
     Indication: LUNG CANCER METASTATIC
     Dosage: 3 MG/KG, Q2WK
     Route: 042
     Dates: start: 20160715
  5. METAMIZOLE [Concomitant]
     Active Substance: METAMIZOLE
     Indication: PAIN
     Dosage: 500 MG, PRN
     Route: 048
     Dates: start: 2015
  6. L-THYROXIN [Concomitant]
     Active Substance: LEVOTHYROXINE SODIUM
     Indication: THYROIDECTOMY
     Dosage: 125 ?G, UNK
     Route: 048
  7. ARANESP [Concomitant]
     Active Substance: DARBEPOETIN ALFA
     Indication: PRODUCT USED FOR UNKNOWN INDICATION
     Dosage: 40 ?G, QWK
     Route: 058
     Dates: start: 20161223
  8. OPDIVO [Suspect]
     Active Substance: NIVOLUMAB
     Indication: PRODUCT USED FOR UNKNOWN INDICATION
     Dosage: 3 MG/KG, Q2WK
     Route: 042
     Dates: start: 20160909, end: 20160909
  9. OPDIVO [Suspect]
     Active Substance: NIVOLUMAB
     Indication: PRODUCT USED FOR UNKNOWN INDICATION
     Dosage: 3 MG/KG, Q2WK
     Route: 042
     Dates: start: 20160826

REACTIONS (3)
  - Carotid artery occlusion [Unknown]
  - Anaemia [Unknown]
  - Tubulointerstitial nephritis [Not Recovered/Not Resolved]

NARRATIVE: CASE EVENT DATE: 201609
